FAERS Safety Report 10043661 (Version 2)
Quarter: 2014Q2

REPORT INFORMATION
  Report Type: Spontaneous
  Country: JP (occurrence: JP)
  Receive Date: 20140328
  Receipt Date: 20140407
  Transmission Date: 20141212
  Serious: Yes (Hospitalization)
  Sender: FDA-Public Use
  Company Number: JP-BAYER-2014-042177

PATIENT
  Age: 62 Year
  Sex: Male
  Weight: 52 kg

DRUGS (1)
  1. BAYASPIRIN [Suspect]
     Dosage: UNK
     Route: 048

REACTIONS (2)
  - Shock haemorrhagic [None]
  - Oesophageal haemorrhage [Recovered/Resolved]
